FAERS Safety Report 7092699-9 (Version None)
Quarter: 2010Q4

REPORT INFORMATION
  Report Type: 
  Country: None (occurrence: None)
  Receive Date: 20101109
  Receipt Date: 20101109
  Transmission Date: 20110411
  Serious: Yes (Death)
  Sender: FDA-Public Use
  Company Number: None

PATIENT
  Sex: Male
  Weight: 120 kg

DRUGS (1)
  1. SIMVASTATIN [Suspect]
     Dosage: 20 MG PO ABT 6 WKS STOPPING 2 WKS PTA
     Route: 048

REACTIONS (3)
  - MULTI-ORGAN FAILURE [None]
  - RHABDOMYOLYSIS [None]
  - SEPSIS [None]
